FAERS Safety Report 10305991 (Version 1)
Quarter: 2014Q3

REPORT INFORMATION
  Report Type: Report from Study
  Country: AR (occurrence: AR)
  Receive Date: 20140715
  Receipt Date: 20140715
  Transmission Date: 20150326
  Serious: Yes (Death, Hospitalization)
  Sender: FDA-Public Use
  Company Number: PHHY2014AR085935

PATIENT
  Age: 65 Year
  Sex: Male

DRUGS (1)
  1. GILENYA [Suspect]
     Active Substance: FINGOLIMOD HYDROCHLORIDE
     Indication: MULTIPLE SCLEROSIS
     Dosage: 0.5 MG, QD

REACTIONS (5)
  - Pneumonia [Fatal]
  - Mediastinum neoplasm [Fatal]
  - Renal impairment [Fatal]
  - Cardio-respiratory arrest [Fatal]
  - Metastases to liver [Fatal]

NARRATIVE: CASE EVENT DATE: 201403
